FAERS Safety Report 22254515 (Version 1)
Quarter: 2023Q2

REPORT INFORMATION
  Report Type: Spontaneous
  Country: US (occurrence: US)
  Receive Date: 20230426
  Receipt Date: 20230426
  Transmission Date: 20230722
  Serious: Yes (Other)
  Sender: FDA-Public Use
  Company Number: US-MYOVANT SCIENCES GMBH-2023MYSCI0400480

PATIENT
  Age: 45 Year
  Sex: Female

DRUGS (3)
  1. MYFEMBREE [Suspect]
     Active Substance: ESTRADIOL HEMIHYDRATE\NORETHINDRONE ACETATE\RELUGOLIX
     Indication: Uterine leiomyoma
     Dosage: 1 TAB, QD
     Route: 048
     Dates: start: 202209, end: 202303
  2. BISOPROLOL W/HYDROCHLOROTHIAZIDE   /06833601/ [Concomitant]
     Indication: Hypertension
     Dosage: 10/6.25 MILLIGRAM, QD
     Route: 048
  3. ACYCLOVIR                          /00587301/ [Concomitant]
     Indication: Prophylaxis
     Dosage: 800 UNK
     Route: 048

REACTIONS (5)
  - Cholecystectomy [Unknown]
  - Drug ineffective [Unknown]
  - Chromaturia [Unknown]
  - Ovarian cyst [Unknown]
  - Heavy menstrual bleeding [Recovering/Resolving]

NARRATIVE: CASE EVENT DATE: 20230403
